FAERS Safety Report 18760633 (Version 1)
Quarter: 2021Q1

REPORT INFORMATION
  Report Type: Spontaneous
  Country: US (occurrence: US)
  Receive Date: 20210120
  Receipt Date: 20210120
  Transmission Date: 20210419
  Serious: No
  Sender: FDA-Public Use
  Company Number: US-TEVA-2020-US-1864420

PATIENT
  Age: 57 Year
  Sex: Female
  Weight: 53.5 kg

DRUGS (6)
  1. AUSTEDO [Suspect]
     Active Substance: DEUTETRABENAZINE
     Indication: TARDIVE DYSKINESIA
     Dosage: 12 MILLIGRAM DAILY;
     Route: 048
     Dates: start: 202006
  2. VITAMIN D3 10 MCG [Concomitant]
  3. PROGESTERONE 200 MG [Concomitant]
     Active Substance: PROGESTERONE
  4. LAMOTRIGINE 100 MG [Concomitant]
     Active Substance: LAMOTRIGINE
  5. VITAMIN C 1000 MG [Concomitant]
  6. ESTRADIOL 0.5 MG [Concomitant]

REACTIONS (1)
  - Hordeolum [Unknown]

NARRATIVE: CASE EVENT DATE: 202012
